FAERS Safety Report 18700758 (Version 1)
Quarter: 2021Q1

REPORT INFORMATION
  Report Type: Spontaneous
  Country: US (occurrence: US)
  Receive Date: 20210104
  Receipt Date: 20210104
  Transmission Date: 20210419
  Serious: No
  Sender: FDA-Public Use
  Company Number: None

PATIENT
  Age: 56 Year
  Sex: Male

DRUGS (9)
  1. HYDROCO/APAP [Concomitant]
     Active Substance: ACETAMINOPHEN\HYDROCODONE
  2. MELOXICAM. [Concomitant]
     Active Substance: MELOXICAM
  3. PREDNISONE. [Concomitant]
     Active Substance: PREDNISONE
  4. DEXTROAMPHET SACCHARAT, AMPHET ASPARTATE, DEXTROAMPHET SULFATE AND AMPHET SULFAT [Concomitant]
     Active Substance: AMPHETAMINE ASPARTATE\AMPHETAMINE SULFATE\DEXTROAMPHETAMINE SACCHARATE\DEXTROAMPHETAMINE SULFATE
  5. LEVOFLOXACIN. [Concomitant]
     Active Substance: LEVOFLOXACIN
  6. TAMSULOSIN [Concomitant]
     Active Substance: TAMSULOSIN
  7. ACTEMRA [Suspect]
     Active Substance: TOCILIZUMAB
     Indication: BURSITIS
     Route: 058
     Dates: start: 20200520
  8. CLINDAMYCIN. [Concomitant]
     Active Substance: CLINDAMYCIN
  9. SMZ/TMP DS [Concomitant]
     Active Substance: SULFAMETHOXAZOLE\TRIMETHOPRIM

REACTIONS (1)
  - Intentional dose omission [None]

NARRATIVE: CASE EVENT DATE: 202010
